FAERS Safety Report 20707484 (Version 1)
Quarter: 2022Q2

REPORT INFORMATION
  Report Type: Spontaneous
  Country: GB (occurrence: GB)
  Receive Date: 20220413
  Receipt Date: 20220413
  Transmission Date: 20220720
  Serious: Yes (Other)
  Sender: FDA-Public Use
  Company Number: GB-GW PHARMA-202203GBGW01206

PATIENT
  Sex: Female

DRUGS (17)
  1. BRIVARACETAM [Suspect]
     Active Substance: BRIVARACETAM
     Indication: Seizure
     Dosage: 40 MILLIGRAM, QD, TAKES 10 MG SIZED TABLET
     Dates: start: 20200711
  2. CANNABIDIOL [Suspect]
     Active Substance: CANNABIDIOL
     Indication: Lennox-Gastaut syndrome
     Dosage: 120 MILLIGRAM, BID,, 3.67 MG/KG/DAY
     Route: 048
     Dates: start: 202008
  3. CANNABIDIOL [Suspect]
     Active Substance: CANNABIDIOL
     Dosage: 160 MILLIGRAM, BID, 4.9 MG/KG/DAY
     Route: 048
  4. CANNABIDIOL [Suspect]
     Active Substance: CANNABIDIOL
     Dosage: 250 MILLIGRAM, BID, 7.66 MG/KG/DAY
     Route: 048
     Dates: start: 2021
  5. CANNABIDIOL [Suspect]
     Active Substance: CANNABIDIOL
     Dosage: 280 MILLIGRAM, BID, 8.58 MG/KG/DAY
     Route: 048
     Dates: start: 2021, end: 2021
  6. VALPROIC ACID [Suspect]
     Active Substance: VALPROIC ACID
     Indication: Seizure cluster
     Dosage: UNK
  7. VALPROIC ACID [Suspect]
     Active Substance: VALPROIC ACID
     Dosage: DOSE REDUCE TO 100MG
  8. CLOBAZAM [Concomitant]
     Active Substance: CLOBAZAM
     Indication: Seizure cluster
     Dosage: 12.5 MILLIGRAM, QD
     Route: 065
     Dates: start: 20220225
  9. CLOBAZAM [Concomitant]
     Active Substance: CLOBAZAM
     Dosage: 15 MILLIGRAM, QD
     Route: 065
  10. CLOBAZAM [Concomitant]
     Active Substance: CLOBAZAM
     Dosage: 20 MILLIGRAM, QD
     Route: 065
     Dates: start: 202008
  11. EPILIM [Concomitant]
     Active Substance: VALPROATE SODIUM
     Indication: Seizure
     Dosage: 800 MILLIGRAM, QD
     Route: 065
     Dates: start: 202008
  12. EPILIM [Concomitant]
     Active Substance: VALPROATE SODIUM
     Dosage: 700 MILLIGRAM, QD, 100 MG LESS THAN BEFORE EPIDYOLEX
     Route: 065
  13. LAMOTRIGINE [Concomitant]
     Active Substance: LAMOTRIGINE
     Indication: Seizure cluster
     Dosage: 275 MILLIGRAM, QD
     Route: 065
     Dates: start: 202008
  14. LAMOTRIGINE [Concomitant]
     Active Substance: LAMOTRIGINE
     Dosage: 200 MILLIGRAM, QD
     Route: 065
  15. LAMOTRIGINE [Concomitant]
     Active Substance: LAMOTRIGINE
     Dosage: REDUCED BY 25 MG MORE THAN ONE OCCASION
     Route: 065
  16. MIDAZOLAM [Concomitant]
     Active Substance: MIDAZOLAM
     Indication: Seizure cluster
     Dosage: UNK
     Route: 002
  17. PERAMPANEL [Concomitant]
     Active Substance: PERAMPANEL
     Indication: Seizure
     Dosage: 2 MILLIGRAM, QD
     Route: 065
     Dates: start: 202008

REACTIONS (15)
  - Unresponsive to stimuli [Unknown]
  - Feeding disorder [Unknown]
  - Balance disorder [Recovering/Resolving]
  - Mobility decreased [Unknown]
  - Daydreaming [Unknown]
  - Asthenia [Unknown]
  - Sleep disorder [Recovering/Resolving]
  - Seizure [Recovering/Resolving]
  - Abnormal behaviour [Recovering/Resolving]
  - Diarrhoea [Recovered/Resolved]
  - Somnolence [Recovering/Resolving]
  - Rash [Unknown]
  - Alanine aminotransferase increased [Recovering/Resolving]
  - Underdose [Unknown]
  - Product use issue [Unknown]

NARRATIVE: CASE EVENT DATE: 20200711
